FAERS Safety Report 15035604 (Version 1)
Quarter: 2018Q2

REPORT INFORMATION
  Report Type: Spontaneous
  Country: US (occurrence: US)
  Receive Date: 20180620
  Receipt Date: 20180620
  Transmission Date: 20180711
  Serious: No
  Sender: FDA-Public Use
  Company Number: US-GLAXOSMITHKLINE-US2018GSK108689

PATIENT
  Sex: Male

DRUGS (2)
  1. BENLYSTA [Suspect]
     Active Substance: BELIMUMAB
     Indication: SYSTEMIC LUPUS ERYTHEMATOSUS
     Dosage: 550 MG, UNK
  2. BENLYSTA [Suspect]
     Active Substance: BELIMUMAB
     Dosage: 550 UNK, UNK

REACTIONS (1)
  - Weight decreased [Unknown]
